FAERS Safety Report 12561566 (Version 1)
Quarter: 2016Q3

REPORT INFORMATION
  Report Type: Spontaneous
  Country: BR (occurrence: BR)
  Receive Date: 20160715
  Receipt Date: 20160715
  Transmission Date: 20161109
  Serious: Yes (Hospitalization, Other)
  Sender: FDA-Public Use
  Company Number: PHHY2016BR094333

PATIENT
  Sex: Female

DRUGS (1)
  1. LEVOFLOXACIN SANDOZ [Suspect]
     Active Substance: LEVOFLOXACIN
     Indication: PNEUMONIA BACTERIAL
     Dosage: 500 MG, QD
     Route: 048
     Dates: start: 20160705

REACTIONS (3)
  - Vision blurred [Unknown]
  - Blood pressure abnormal [Unknown]
  - Blood glucose increased [Unknown]
